FAERS Safety Report 11386098 (Version 1)
Quarter: 2015Q3

REPORT INFORMATION
  Report Type: Spontaneous
  Country: US (occurrence: US)
  Receive Date: 20150817
  Receipt Date: 20150817
  Transmission Date: 20151125
  Serious: No
  Sender: FDA-Public Use
  Company Number: US-JNJFOC-20150804303

PATIENT
  Weight: 97.07 kg

DRUGS (2)
  1. DURAGESIC [Suspect]
     Active Substance: FENTANYL
     Indication: PAIN
     Route: 062
  2. DURAGESIC [Suspect]
     Active Substance: FENTANYL
     Indication: PAIN
     Route: 062

REACTIONS (5)
  - Inappropriate schedule of drug administration [Unknown]
  - Drug dose omission [Unknown]
  - Product adhesion issue [Unknown]
  - Hyperhidrosis [Unknown]
  - Wrong technique in product usage process [Unknown]
